FAERS Safety Report 4560860-0 (Version None)
Quarter: 2005Q1

REPORT INFORMATION
  Report Type: 
  Country: None (occurrence: None)
  Receive Date: 20050121
  Receipt Date: 20050110
  Transmission Date: 20050727
  Serious: Yes (Hospitalization)
  Sender: FDA-Public Use
  Company Number: 2004CG02455

PATIENT
  Age: 64 Year
  Sex: Female
  Weight: 93 kg

DRUGS (5)
  1. CRESTOR [Suspect]
     Indication: DYSLIPIDAEMIA
     Dosage: 10 MG DAILY PO
     Route: 048
     Dates: start: 20041122, end: 20041129
  2. COTAREG     NOVARTIS [Concomitant]
  3. ISOPTIN [Concomitant]
  4. ACETAMINOPHEN [Concomitant]
  5. LASILIX [Concomitant]

REACTIONS (7)
  - COMPLEMENT FACTOR INCREASED [None]
  - HYPERKALAEMIA [None]
  - HYPONATRAEMIA [None]
  - NEPHROTIC SYNDROME [None]
  - PROTEINURIA [None]
  - RENAL FAILURE [None]
  - WEIGHT INCREASED [None]
